FAERS Safety Report 16787620 (Version 2)
Quarter: 2019Q3

REPORT INFORMATION
  Report Type: Spontaneous
  Country: US (occurrence: US)
  Receive Date: 20190909
  Receipt Date: 20190916
  Transmission Date: 20191005
  Serious: Yes (Hospitalization)
  Sender: FDA-Public Use
  Company Number: US-ACTELION-A-US2019-194526

PATIENT
  Sex: Male
  Weight: 65.76 kg

DRUGS (2)
  1. ADEMPAS [Concomitant]
     Active Substance: RIOCIGUAT
     Dosage: 1 MG
     Dates: start: 20190802
  2. OPSUMIT [Suspect]
     Active Substance: MACITENTAN
     Indication: PULMONARY ARTERIAL HYPERTENSION
     Dosage: 10 MG, QD
     Route: 048
     Dates: start: 20190802

REACTIONS (9)
  - Right ventricular failure [Unknown]
  - Swelling face [Unknown]
  - Swelling [Unknown]
  - Decreased appetite [Unknown]
  - Peripheral swelling [Unknown]
  - Abdominal pain upper [Unknown]
  - Pulmonary oedema [Unknown]
  - Obstructive airways disorder [Unknown]
  - Dyspnoea [Unknown]
